FAERS Safety Report 17607627 (Version 2)
Quarter: 2020Q2

REPORT INFORMATION
  Report Type: Spontaneous
  Country: SE (occurrence: SE)
  Receive Date: 20200331
  Receipt Date: 20200403
  Transmission Date: 20200713
  Serious: Yes (Death, Life-Threatening, Hospitalization, Other)
  Sender: FDA-Public Use
  Company Number: NVSC2020SE058038

PATIENT
  Age: 7 Year
  Sex: Male

DRUGS (4)
  1. VOTUBIA [Suspect]
     Active Substance: EVEROLIMUS
     Indication: BRAIN STEM GLIOMA
     Dosage: 2.5 MG, QD  (FOR A CUMULATIVE DOSAGE BEFORE EVENT ONSET OF 12.5MG)
     Route: 048
     Dates: start: 20200125, end: 20200125
  2. RISPERDAL [Concomitant]
     Active Substance: RISPERIDONE
     Indication: HALLUCINATION
     Dosage: 0.5 MG
     Route: 048
     Dates: start: 20200111
  3. VOTUBIA [Suspect]
     Active Substance: EVEROLIMUS
     Dosage: 5 MG, (FOR A CUMULATIVE DOSAGE BEFORE EVENT ONSET OF 285 MG)
     Route: 048
     Dates: start: 20200319, end: 20200324
  4. RISPERIDON [Concomitant]
     Active Substance: RISPERIDONE
     Indication: PRODUCT USED FOR UNKNOWN INDICATION
     Dosage: 0.5 MG, UNKNOWN
     Route: 065
     Dates: start: 20200324

REACTIONS (9)
  - Altered state of consciousness [Recovered/Resolved]
  - Malignant neoplasm progression [Fatal]
  - Brain stem glioma [Fatal]
  - Headache [Recovered/Resolved]
  - Dyspnoea [Recovered/Resolved]
  - Tumour haemorrhage [Unknown]
  - Vomiting [Recovered/Resolved]
  - Headache [Recovered/Resolved]
  - Product use in unapproved indication [Unknown]

NARRATIVE: CASE EVENT DATE: 20200125
